FAERS Safety Report 22702764 (Version 9)
Quarter: 2025Q2

REPORT INFORMATION
  Report Type: Spontaneous
  Country: GB (occurrence: GB)
  Receive Date: 20230713
  Receipt Date: 20250502
  Transmission Date: 20250716
  Serious: Yes (Life-Threatening, Hospitalization, Other)
  Sender: TAKEDA
  Company Number: GB-TAKEDA-2023TUS048537

PATIENT
  Sex: Male

DRUGS (9)
  1. ENTYVIO [Suspect]
     Active Substance: VEDOLIZUMAB
     Indication: Colitis ulcerative
  2. ENTYVIO [Suspect]
     Active Substance: VEDOLIZUMAB
  3. ENTYVIO [Suspect]
     Active Substance: VEDOLIZUMAB
  4. ENTYVIO [Suspect]
     Active Substance: VEDOLIZUMAB
  5. ENTYVIO [Suspect]
     Active Substance: VEDOLIZUMAB
  6. ENTYVIO [Suspect]
     Active Substance: VEDOLIZUMAB
  7. ENTYVIO [Suspect]
     Active Substance: VEDOLIZUMAB
  8. ENTYVIO [Suspect]
     Active Substance: VEDOLIZUMAB
  9. ENTYVIO [Suspect]
     Active Substance: VEDOLIZUMAB

REACTIONS (21)
  - Cardiac arrest [Not Recovered/Not Resolved]
  - Pneumonia [Not Recovered/Not Resolved]
  - Lower respiratory tract infection [Unknown]
  - Cholelithiasis [Recovered/Resolved]
  - Pneumoconiosis [Unknown]
  - Influenza [Unknown]
  - Defaecation urgency [Unknown]
  - Diarrhoea [Unknown]
  - Weight decreased [Unknown]
  - Bowel movement irregularity [Unknown]
  - Anal incontinence [Unknown]
  - Depressed mood [Unknown]
  - Somnolence [Unknown]
  - Hypoacusis [Unknown]
  - Dyschezia [Unknown]
  - Decreased appetite [Unknown]
  - Constipation [Unknown]
  - Back pain [Unknown]
  - Fatigue [Unknown]
  - Pain in extremity [Unknown]
  - Sinusitis [Unknown]
